FAERS Safety Report 17715487 (Version 1)
Quarter: 2020Q2

REPORT INFORMATION
  Report Type: Report from Study
  Country: CO (occurrence: CO)
  Receive Date: 20200427
  Receipt Date: 20200427
  Transmission Date: 20200714
  Serious: Yes (Hospitalization)
  Sender: FDA-Public Use
  Company Number: CO-INCYTE CORPORATION-2017IN011525

PATIENT

DRUGS (1)
  1. JAKAVI [Suspect]
     Active Substance: RUXOLITINIB
     Indication: PRODUCT USED FOR UNKNOWN INDICATION
     Dosage: 80 MG, QD (4 TABLETS OF 20MG DAILY)
     Route: 065

REACTIONS (2)
  - Hepatitis [Unknown]
  - Incorrect dose administered [Unknown]
